FAERS Safety Report 12442771 (Version 2)
Quarter: 2016Q2

REPORT INFORMATION
  Report Type: Spontaneous
  Country: GB (occurrence: GB)
  Receive Date: 20160607
  Receipt Date: 20160615
  Transmission Date: 20160815
  Serious: Yes (Other)
  Sender: FDA-Public Use
  Company Number: GB-B.I. PHARMACEUTICALS,INC./RIDGEFIELD-2016-BI-35037UK

PATIENT
  Age: 3 Year
  Sex: Male
  Weight: 14 kg

DRUGS (3)
  1. PERSANTIN [Suspect]
     Active Substance: DIPYRIDAMOLE
     Indication: LIVER TRANSPLANT
     Dosage: 150 MG
     Route: 048
     Dates: start: 20160421, end: 20160511
  2. ASPIRIN. [Suspect]
     Active Substance: ASPIRIN
     Indication: LIVER TRANSPLANT
     Dosage: 40 MG
     Route: 048
     Dates: start: 20160421, end: 20160511
  3. DEXAMETASONE [Suspect]
     Active Substance: DEXAMETHASONE
     Indication: EXTUBATION
     Dosage: 14 MG
     Route: 042
     Dates: start: 20160509, end: 20160510

REACTIONS (1)
  - Gastrointestinal haemorrhage [Not Recovered/Not Resolved]

NARRATIVE: CASE EVENT DATE: 20160510
